FAERS Safety Report 8028536-5 (Version None)
Quarter: 2012Q1

REPORT INFORMATION
  Report Type: 
  Country: None (occurrence: None)
  Receive Date: 20120106
  Receipt Date: 20120104
  Transmission Date: 20120608
  Serious: Yes (Hospitalization, Other)
  Sender: FDA-Public Use
  Company Number: US-BAYER-2011-047209

PATIENT
  Sex: Female

DRUGS (5)
  1. RANITIDINE [Concomitant]
  2. BETASERON [Suspect]
     Indication: RELAPSING-REMITTING MULTIPLE SCLEROSIS
     Dosage: 2 MIU, QOD
     Route: 058
     Dates: start: 20110527
  3. IBUPROFEN [Concomitant]
     Dosage: UNK UNK, PRN
  4. BETASERON [Suspect]
     Dosage: UNK
     Dates: end: 20110701
  5. BETASERON [Suspect]
     Dosage: 8 MIU, QOD
     Route: 058
     Dates: start: 20110702

REACTIONS (7)
  - FEELING ABNORMAL [None]
  - HYPOAESTHESIA [None]
  - INJECTION SITE PAIN [None]
  - VISION BLURRED [None]
  - MOBILITY DECREASED [None]
  - MULTIPLE SCLEROSIS RELAPSE [None]
  - INFLUENZA LIKE ILLNESS [None]
